FAERS Safety Report 9058270 (Version 1)
Quarter: 2013Q1

REPORT INFORMATION
  Report Type: Spontaneous
  Country: JP (occurrence: JP)
  Receive Date: 20130211
  Receipt Date: 20130211
  Transmission Date: 20140127
  Serious: Yes (Other)
  Sender: FDA-Public Use
  Company Number: JP-AMGEN-JPNSP2013009360

PATIENT
  Age: 55 Year
  Sex: Female
  Weight: 60 kg

DRUGS (19)
  1. RANMARK [Suspect]
     Indication: METASTASES TO BONE
     Route: 058
     Dates: start: 20120704, end: 20121107
  2. CALCIUM LACTATE [Suspect]
     Indication: HYPOCALCAEMIA
     Route: 048
     Dates: start: 20121107, end: 20121121
  3. ONEALFA [Concomitant]
     Indication: HYPOCALCAEMIA
     Route: 048
     Dates: start: 20120711, end: 20121030
  4. ONEALFA [Concomitant]
     Route: 048
     Dates: start: 20121031, end: 20121121
  5. FERO GRADUMET [Concomitant]
     Indication: ANAEMIA
     Route: 048
     Dates: start: 20120718
  6. TAKEPRON [Concomitant]
     Indication: GASTROOESOPHAGEAL REFLUX DISEASE
     Route: 048
     Dates: start: 20100324
  7. PYDOXAL [Concomitant]
     Indication: NEUROPATHY PERIPHERAL
     Dosage: 10 MG, UNK
     Route: 048
     Dates: start: 20120718
  8. LOXONIN [Concomitant]
     Indication: BACK PAIN
     Route: 048
     Dates: start: 20090916
  9. MAGLAX [Concomitant]
     Indication: CONSTIPATION
     Route: 048
     Dates: start: 20110112
  10. PURSENNID /00142207/ [Concomitant]
     Indication: CONSTIPATION
     Route: 048
     Dates: start: 20101021
  11. FENTOS [Concomitant]
     Indication: CANCER PAIN
     Route: 050
     Dates: start: 20120516
  12. ASPARA-CA [Concomitant]
     Indication: HYPOCALCAEMIA
     Route: 048
     Dates: start: 20120711, end: 20121106
  13. 5 FU [Concomitant]
     Indication: BREAST CANCER RECURRENT
     Route: 042
     Dates: start: 20120718, end: 20121107
  14. ENDOXAN /00021101/ [Concomitant]
     Indication: BREAST CANCER RECURRENT
     Route: 042
     Dates: start: 20120718, end: 20121107
  15. FARMORUBICIN [Concomitant]
     Indication: BREAST CANCER RECURRENT
     Route: 042
     Dates: start: 20120718, end: 20121107
  16. ALOXI [Concomitant]
     Dosage: UNKNOWN
     Route: 042
  17. DECADRON                           /00016001/ [Concomitant]
     Dosage: UNK
     Route: 042
  18. KYTRIL [Concomitant]
     Route: 065
  19. EMEND                              /01627301/ [Concomitant]
     Dosage: 1SET
     Route: 065

REACTIONS (2)
  - Calculus ureteric [Recovering/Resolving]
  - Hydronephrosis [Recovering/Resolving]
